FAERS Safety Report 4781255-0 (Version None)
Quarter: 2005Q3

REPORT INFORMATION
  Report Type: 
  Country: None (occurrence: None)
  Receive Date: 20050928
  Receipt Date: 20050926
  Transmission Date: 20060218
  Serious: Yes (Other)
  Sender: FDA-Public Use
  Company Number: US-GLAXOSMITHKLINE-A0575906A

PATIENT
  Age: 52 Year
  Sex: Female

DRUGS (13)
  1. LAMICTAL [Suspect]
     Indication: AFFECTIVE DISORDER
     Dosage: 150MG TWICE PER DAY
     Route: 048
  2. LIPITOR [Concomitant]
  3. NORVASC [Concomitant]
  4. ATACAND [Concomitant]
  5. TRIAZOLAM [Concomitant]
  6. ESTRATEST [Concomitant]
  7. NEXIUM [Concomitant]
  8. KLONOPIN [Concomitant]
  9. SYNTHROID [Concomitant]
  10. ATENOLOL [Concomitant]
  11. KLOR-CON [Concomitant]
  12. MIDAMOR [Concomitant]
  13. UNSPECIFIED MEDICATION [Concomitant]

REACTIONS (2)
  - AMNESIA [None]
  - CONVULSION [None]
